FAERS Safety Report 5567038-2 (Version None)
Quarter: 2007Q4

REPORT INFORMATION
  Report Type: 
  Country: None (occurrence: None)
  Receive Date: 20071219
  Receipt Date: 20071217
  Transmission Date: 20080405
  Serious: Yes (Death)
  Sender: FDA-Public Use
  Company Number: US-ASTRAZENECA-2007UW28464

PATIENT
  Age: 54 Year
  Sex: Female
  Weight: 45.4 kg

DRUGS (19)
  1. SEROQUEL [Suspect]
     Indication: DISSOCIATIVE IDENTITY DISORDER
     Route: 048
     Dates: start: 20020101
  2. SEROQUEL [Suspect]
     Indication: BIPOLAR DISORDER
     Route: 048
     Dates: start: 20020101
  3. CLONAZEPAM [Concomitant]
  4. AMBIEN [Concomitant]
  5. EFFEXOR [Concomitant]
  6. ZETIA [Concomitant]
  7. ATENOLOL [Concomitant]
  8. COUMADIN [Concomitant]
  9. REMERON [Concomitant]
  10. BUSPAR [Concomitant]
  11. FENTANYL TRANSDERMAL PATCH [Concomitant]
  12. TIVANAEINE [Concomitant]
  13. HYDROCOAPA [Concomitant]
  14. FORTICOL NASAL SPRAY [Concomitant]
  15. RHINOCORT [Concomitant]
  16. ATROVENT [Concomitant]
  17. ACTIVA [Concomitant]
  18. COMBIVENT [Concomitant]
     Route: 055
  19. ALBUTEROL [Concomitant]
     Route: 055

REACTIONS (2)
  - DEATH [None]
  - INSOMNIA [None]
